FAERS Safety Report 9260580 (Version 1)
Quarter: 2013Q2

REPORT INFORMATION
  Report Type: Spontaneous
  Country: US (occurrence: US)
  Receive Date: 20130429
  Receipt Date: 20130429
  Transmission Date: 20140414
  Serious: Yes (Hospitalization)
  Sender: FDA-Public Use
  Company Number: US-COVIDIEN/TYCO HEALTHCARE/MALLINCKRODT-T201301696

PATIENT
  Age: 59 Year
  Sex: Female

DRUGS (1)
  1. GABLOFEN [Suspect]
     Indication: MUSCLE SPASTICITY
     Dosage: 165 MCG/DAY
     Route: 037

REACTIONS (4)
  - Mental status changes [Unknown]
  - Infection [Unknown]
  - Muscle spasticity [Unknown]
  - Pneumonia [Unknown]
